FAERS Safety Report 7401488-4 (Version None)
Quarter: 2011Q2

REPORT INFORMATION
  Report Type: 
  Country: None (occurrence: None)
  Receive Date: 20110408
  Receipt Date: 20110401
  Transmission Date: 20111010
  Serious: Yes (Hospitalization, Other)
  Sender: FDA-Public Use
  Company Number: US-ASTRAZENECA-2009UW08171

PATIENT
  Age: 42 Year
  Sex: Male
  Weight: 95.3 kg

DRUGS (44)
  1. SEROQUEL [Suspect]
     Indication: BIPOLAR DISORDER
     Route: 048
     Dates: start: 20010101, end: 20031201
  2. SEROQUEL [Suspect]
     Route: 048
     Dates: start: 20070102
  3. ABILIFY [Concomitant]
     Route: 048
     Dates: start: 20060531
  4. DEPAKOTE [Concomitant]
     Indication: AFFECTIVE DISORDER
     Dosage: 250MG - 1000MG
     Dates: start: 20031204
  5. ZOLOFT [Concomitant]
     Route: 048
     Dates: start: 20031204
  6. XANAX [Concomitant]
     Dates: start: 20031125
  7. PROPO-N/APAP [Concomitant]
     Dates: start: 20031127
  8. TRILEPTAL [Concomitant]
     Dosage: 600 MG ONE IN MORNING AND TWO AT BEDTIME
     Dates: start: 20090911
  9. CYMBALTA [Concomitant]
     Route: 048
     Dates: start: 20020101
  10. HALDOL [Concomitant]
     Dates: start: 20070102
  11. SEROQUEL [Suspect]
     Route: 048
     Dates: start: 20010101, end: 20040101
  12. SEROQUEL [Suspect]
     Dosage: 100MG-600MG
     Route: 048
     Dates: start: 20031204
  13. SEROQUEL [Suspect]
     Dosage: 100MG-600MG
     Route: 048
     Dates: start: 20031204
  14. SYNTHROID [Concomitant]
     Dosage: 175 QD
     Dates: start: 20031222
  15. VIOXX [Concomitant]
     Indication: PAIN
     Dates: start: 20040105
  16. PROPO-N/APAP [Concomitant]
     Dosage: 100-650MG
     Dates: start: 20030929
  17. SEROQUEL [Suspect]
     Route: 048
     Dates: start: 20031230
  18. SEROQUEL [Suspect]
     Dosage: 300MG
     Route: 048
     Dates: start: 20040102
  19. DEPAKOTE [Concomitant]
     Dates: start: 20031222
  20. LEXAPRO [Concomitant]
     Dates: start: 20030929
  21. EFFEXOR XR/EFFEXOR [Concomitant]
     Dates: start: 20031125
  22. TRILEPTAL [Concomitant]
     Dosage: 300-600 MG
     Route: 048
     Dates: start: 20060531
  23. BENZTROPINE [Concomitant]
     Dates: start: 20090911
  24. SEROQUEL [Suspect]
     Dosage: 300MG
     Route: 048
     Dates: start: 20040102
  25. SEROQUEL [Suspect]
     Route: 048
     Dates: start: 20070102
  26. DEPAKOTE [Concomitant]
     Indication: BIPOLAR DISORDER
     Dosage: 250MG - 1000MG
     Dates: start: 20031204
  27. ZOLOFT [Concomitant]
     Dates: start: 20031101
  28. ABILIFY [Concomitant]
     Dates: start: 20020101
  29. SEROQUEL [Suspect]
     Indication: PSYCHOTIC DISORDER
     Route: 048
     Dates: start: 20010101, end: 20031201
  30. SEROQUEL [Suspect]
     Route: 048
     Dates: start: 20010101, end: 20040101
  31. SEROQUEL [Suspect]
     Route: 048
     Dates: start: 20031222
  32. DEPAKOTE [Concomitant]
     Dates: start: 20031222
  33. ZOLOFT [Concomitant]
     Dates: start: 20031222
  34. SYNTHROID [Concomitant]
     Dosage: 175MCG, 0.15 MG DAILY
     Dates: start: 20040105
  35. SEROQUEL [Suspect]
     Route: 048
     Dates: start: 20031222
  36. TRILEPTAL [Concomitant]
     Dosage: 900 MG QAM 1500 MG QHS
     Dates: start: 20020101
  37. RISPERDAL [Concomitant]
     Dates: start: 20031127
  38. VALPROIC ACID [Concomitant]
     Dosage: 250 MG II BID
     Route: 048
     Dates: start: 20031230
  39. NIASPAN [Concomitant]
     Dates: start: 20020101
  40. SEROQUEL [Suspect]
     Route: 048
     Dates: start: 20031230
  41. SYNTHROID [Concomitant]
     Indication: THYROID DISORDER
     Dosage: 150 MCG
     Dates: start: 20020101
  42. SYNTHROID [Concomitant]
     Dosage: 100MCG - 150 MCG
     Dates: start: 20031204
  43. NASONEX [Concomitant]
     Dosage: 50MCG/AC SPR
     Dates: start: 20031106
  44. RISPERDAL [Concomitant]
     Dosage: ONE OR TWO WEEKS
     Dates: start: 20031101

REACTIONS (5)
  - DIABETIC COMPLICATION [None]
  - TYPE 2 DIABETES MELLITUS [None]
  - ARTHRALGIA [None]
  - ARTHROPATHY [None]
  - ERECTILE DYSFUNCTION [None]
